FAERS Safety Report 5021983-5 (Version None)
Quarter: 2006Q2

REPORT INFORMATION
  Report Type: 
  Country: None (occurrence: None)
  Receive Date: 20060501
  Receipt Date: 20060223
  Transmission Date: 20061013
  Serious: Yes (Other)
  Sender: FDA-Public Use
  Company Number: 200610596US

PATIENT
  Age: 45 Year
  Sex: Female

DRUGS (7)
  1. KETEK [Suspect]
     Indication: SINUSITIS
     Dosage: 2/400MG TABLETS MG QD PO
     Route: 048
     Dates: start: 20060101
  2. KETEK [Suspect]
     Indication: SINUSITIS
     Dosage: 2/400MG TABLETS MG QD PO
     Route: 048
     Dates: start: 20060111
  3. ZYRTEC [Concomitant]
  4. MEDROL [Concomitant]
  5. MOMETASONE FUROATE (NASONEX) [Concomitant]
  6. MONTELUKAST SODIUM [Concomitant]
  7. RANITIDINE [Concomitant]

REACTIONS (11)
  - ARRHYTHMIA [None]
  - BRADYCARDIA [None]
  - CHEST PAIN [None]
  - DIZZINESS [None]
  - DYSPNOEA [None]
  - EXTRASYSTOLES [None]
  - HYPOTENSION [None]
  - LOSS OF CONSCIOUSNESS [None]
  - MALAISE [None]
  - NAUSEA [None]
  - PALPITATIONS [None]
